FAERS Safety Report 6297735-5 (Version None)
Quarter: 2009Q3

REPORT INFORMATION
  Report Type: 
  Country: None (occurrence: None)
  Receive Date: 20090804
  Receipt Date: 20090804
  Transmission Date: 20100115
  Serious: Yes (Other)
  Sender: FDA-Public Use
  Company Number: None

PATIENT
  Sex: Male
  Weight: 92.9874 kg

DRUGS (1)
  1. ZICAM COLD REMEDY GEL SWAB ZICAM [Suspect]
     Indication: NASOPHARYNGITIS
     Dosage: I GEL SWAB FOR BOTH NOSTRILS 1 TUB/4 HRS NASAL YEARS
     Route: 045
     Dates: start: 20000301, end: 20090701

REACTIONS (2)
  - HYPOSMIA [None]
  - POOR PERIPHERAL CIRCULATION [None]
